FAERS Safety Report 22309658 (Version 1)
Quarter: 2023Q2

REPORT INFORMATION
  Report Type: Spontaneous
  Country: US (occurrence: US)
  Receive Date: 20230511
  Receipt Date: 20230511
  Transmission Date: 20230721
  Serious: Yes (Other)
  Sender: FDA-Public Use
  Company Number: US-ABBVIE-4763039

PATIENT
  Sex: Female

DRUGS (1)
  1. LUPRON [Suspect]
     Active Substance: LEUPROLIDE ACETATE
     Indication: Product used for unknown indication
     Route: 030

REACTIONS (7)
  - Blindness [Unknown]
  - Unevaluable event [Unknown]
  - Musculoskeletal disorder [Unknown]
  - Nerve compression [Unknown]
  - Pancreatic disorder [Unknown]
  - Diabetes mellitus [Unknown]
  - Tooth loss [Unknown]
